FAERS Safety Report 5033308-X (Version None)
Quarter: 2006Q2

REPORT INFORMATION
  Report Type: 
  Country: None (occurrence: None)
  Receive Date: 20060511
  Receipt Date: 20060414
  Transmission Date: 20061013
  Serious: No
  Sender: FDA-Public Use
  Company Number: 200613494US

PATIENT

DRUGS (2)
  1. APIDRA [Suspect]
  2. INSULIN [Suspect]

REACTIONS (1)
  - BLOOD GLUCOSE INCREASED [None]
